FAERS Safety Report 17306727 (Version 1)
Quarter: 2020Q1

REPORT INFORMATION
  Report Type: Spontaneous
  Country: US (occurrence: US)
  Receive Date: 20200106
  Receipt Date: 20200106
  Transmission Date: 20200409
  Serious: Yes (Hospitalization)
  Sender: FDA-Public Use
  Company Number: None

PATIENT
  Age: 64 Year
  Sex: Male
  Weight: 77.11 kg

DRUGS (2)
  1. PACLITAXEL (PACLITAXEL PROTEIN-BOUND 100MG/VIL INJ) [Suspect]
     Active Substance: PACLITAXEL
     Indication: LUNG SQUAMOUS CELL CARCINOMA STAGE IV
     Dosage: ?          OTHER STRENGTH:100 MG/VIL;?
     Route: 042
     Dates: start: 20180716, end: 20191220
  2. CARBOPLATIN (CARBOPLATIN 60 0MG/VIL INJ) [Suspect]
     Active Substance: CARBOPLATIN
     Indication: LUNG SQUAMOUS CELL CARCINOMA STAGE IV
     Dosage: ?          OTHER STRENGTH:600 MG/VIL;?
     Route: 042
     Dates: start: 20180716, end: 20191220

REACTIONS (4)
  - Swelling [None]
  - Swelling face [None]
  - Anaphylactic reaction [None]
  - Pharyngeal swelling [None]

NARRATIVE: CASE EVENT DATE: 20191220
